FAERS Safety Report 4575744-1 (Version None)
Quarter: 2005Q1

REPORT INFORMATION
  Report Type: 
  Country: None (occurrence: None)
  Receive Date: 20050209
  Receipt Date: 20050131
  Transmission Date: 20050727
  Serious: Yes (Other)
  Sender: FDA-Public Use
  Company Number: US-GLAXOSMITHKLINE-A0542939A

PATIENT
  Age: 67 Year
  Sex: Female
  Weight: 50 kg

DRUGS (2)
  1. VIVARIN [Suspect]
     Indication: HYPERVIGILANCE
     Dosage: 2TAB PER DAY
     Route: 048
     Dates: start: 19980101, end: 20040801
  2. BLOOD PRESSURE MEDICATION [Concomitant]
     Indication: HYPERTENSION
     Route: 048

REACTIONS (3)
  - AMNESIA [None]
  - DEMENTIA ALZHEIMER'S TYPE [None]
  - DRUG ABUSER [None]
